FAERS Safety Report 15690669 (Version 1)
Quarter: 2018Q4

REPORT INFORMATION
  Report Type: Spontaneous
  Country: PK (occurrence: PK)
  Receive Date: 20181205
  Receipt Date: 20181205
  Transmission Date: 20190205
  Serious: Yes (Hospitalization)
  Sender: FDA-Public Use
  Company Number: PK-ELI_LILLY_AND_COMPANY-PK201811014706

PATIENT
  Sex: Female

DRUGS (1)
  1. HUMALOG MIX50/50 [Suspect]
     Active Substance: INSULIN LISPRO
     Indication: DIABETES MELLITUS
     Dosage: UNK, UNKNOWN
     Route: 058

REACTIONS (1)
  - Lip and/or oral cavity cancer [Not Recovered/Not Resolved]

NARRATIVE: CASE EVENT DATE: 201806
